FAERS Safety Report 18333274 (Version 1)
Quarter: 2020Q4

REPORT INFORMATION
  Report Type: Spontaneous
  Country: DE (occurrence: DE)
  Receive Date: 20201001
  Receipt Date: 20201001
  Transmission Date: 20210113
  Serious: Yes (Disabling, Other)
  Sender: FDA-Public Use
  Company Number: DE-ALK-ABELLO A/S-2020AA002909

PATIENT

DRUGS (1)
  1. ACARIZAX [Suspect]
     Active Substance: DERMATOPHAGOIDES FARINAE\DERMATOPHAGOIDES PTERONYSSINUS
     Indication: IMMUNE TOLERANCE INDUCTION
     Dosage: UNK
     Route: 060
     Dates: start: 201808

REACTIONS (2)
  - Dysphagia [Not Recovered/Not Resolved]
  - Eosinophilic oesophagitis [Not Recovered/Not Resolved]

NARRATIVE: CASE EVENT DATE: 201912
